FAERS Safety Report 22269421 (Version 4)
Quarter: 2024Q1

REPORT INFORMATION
  Report Type: Report from Study
  Country: US (occurrence: US)
  Receive Date: 20230501
  Receipt Date: 20240215
  Transmission Date: 20240409
  Serious: No
  Sender: FDA-Public Use
  Company Number: US-SA-SAC20230425001581

PATIENT
  Sex: Male

DRUGS (1)
  1. DUPILUMAB [Suspect]
     Active Substance: DUPILUMAB
     Indication: Dermatitis atopic
     Dosage: 300 MG, QOW
     Route: 058
     Dates: end: 202308

REACTIONS (9)
  - Hyperaesthesia [Unknown]
  - Skin induration [Unknown]
  - Sensitive skin [Unknown]
  - Skin fissures [Recovering/Resolving]
  - Skin haemorrhage [Recovering/Resolving]
  - Rebound effect [Unknown]
  - Skin exfoliation [Recovering/Resolving]
  - Pruritus [Unknown]
  - Rash [Unknown]
